FAERS Safety Report 6551564-3 (Version None)
Quarter: 2010Q1

REPORT INFORMATION
  Report Type: 
  Country: None (occurrence: None)
  Receive Date: 20100126
  Receipt Date: 20100121
  Transmission Date: 20100710
  Serious: Yes (Death, Other)
  Sender: FDA-Public Use
  Company Number: PHHY2009CA35604

PATIENT
  Sex: Female

DRUGS (1)
  1. SANDOSTATIN LAR [Suspect]
     Indication: OVARIAN CANCER METASTATIC
     Dosage: 20 MG, EVERY 4 WEEKS
     Route: 030
     Dates: start: 20090401, end: 20090819

REACTIONS (4)
  - ABDOMINAL DISTENSION [None]
  - DEATH [None]
  - DIARRHOEA [None]
  - DYSPNOEA [None]
